FAERS Safety Report 18440624 (Version 4)
Quarter: 2020Q4

REPORT INFORMATION
  Report Type: Report from Study
  Country: ES (occurrence: ES)
  Receive Date: 20201029
  Receipt Date: 20201228
  Transmission Date: 20210114
  Serious: Yes (Death, Hospitalization, Other)
  Sender: FDA-Public Use
  Company Number: ES-ROCHE-2702430

PATIENT
  Age: 62 Year
  Sex: Male
  Weight: 83 kg

DRUGS (2)
  1. CABOZANTINIB [Suspect]
     Active Substance: CABOZANTINIB
     Indication: HEPATOCELLULAR CARCINOMA
     Dosage: ON 13/OCT/2020,HE RECEIVED THE MOST RECENT DOSE OF CABOZANTINIB PRIOR TO ONSET OF SERIOUS ADVERSE EV
     Route: 048
     Dates: start: 20200219, end: 20201014
  2. ATEZOLIZUMAB. [Suspect]
     Active Substance: ATEZOLIZUMAB
     Indication: HEPATOCELLULAR CARCINOMA
     Dosage: ON 17/SEP/2020, HE RECEIVED THE MOST RECENT DOSE OF ATEZOLIZUMAB PRIOR TO ONSET OF SERIOUS ADVERSE E
     Route: 042
     Dates: start: 20200219, end: 20200917

REACTIONS (3)
  - COVID-19 [Not Recovered/Not Resolved]
  - Malignant neoplasm progression [Fatal]
  - Immune-mediated nephritis [Not Recovered/Not Resolved]

NARRATIVE: CASE EVENT DATE: 20201014
